FAERS Safety Report 25535813 (Version 1)
Quarter: 2025Q3

REPORT INFORMATION
  Report Type: Spontaneous
  Country: US (occurrence: US)
  Receive Date: 20250709
  Receipt Date: 20250709
  Transmission Date: 20251021
  Serious: Yes (Hospitalization)
  Sender: PRIMUS PHARMACEUTICALS
  Company Number: US-PRIMUS-2025-US-032777

PATIENT
  Age: 67 Year
  Sex: Female

DRUGS (9)
  1. IMPOYZ [Suspect]
     Active Substance: CLOBETASOL PROPIONATE
     Indication: Product used for unknown indication
     Route: 061
     Dates: start: 20250527
  2. VITAMIN B1 [Concomitant]
     Active Substance: THIAMINE HYDROCHLORIDE
  3. SPIRONOLACTONE [Concomitant]
     Active Substance: SPIRONOLACTONE
  4. PANTOPRAZOLE [Concomitant]
     Active Substance: PANTOPRAZOLE
  5. MIRTAZAPINE [Concomitant]
     Active Substance: MIRTAZAPINE
  6. LACTULOSE [Concomitant]
     Active Substance: LACTULOSE
  7. FUROSEMIDE [Concomitant]
     Active Substance: FUROSEMIDE
  8. FLUOCINOLONE [Concomitant]
     Active Substance: FLUOCINOLONE
  9. CARVEDILOL [Concomitant]
     Active Substance: CARVEDILOL

REACTIONS (1)
  - Hospitalisation [Unknown]
